FAERS Safety Report 7470816-6 (Version None)
Quarter: 2011Q2

REPORT INFORMATION
  Report Type: 
  Country: None (occurrence: None)
  Receive Date: 20110510
  Receipt Date: 20110505
  Transmission Date: 20111010
  Serious: Yes (Death)
  Sender: FDA-Public Use
  Company Number: GR-PFIZER INC-2011096830

PATIENT
  Age: 64 Year
  Sex: Male
  Weight: 65 kg

DRUGS (5)
  1. TORISEL [Suspect]
     Indication: RENAL CELL CARCINOMA
     Dosage: 25 MG, WEEKLY
     Route: 042
     Dates: start: 20110223, end: 20110413
  2. MEDROL [Concomitant]
     Indication: RASH
     Dosage: 16 MG, 3X/DAY
     Route: 048
     Dates: start: 20110414, end: 20110420
  3. COAPROVEL [Concomitant]
     Indication: HYPERTENSION
     Dosage: 312.5 MG (300+12.5 MG), 1X/DAY
     Route: 048
     Dates: start: 20110330, end: 20110428
  4. BEVACIZUMAB [Suspect]
     Indication: RENAL CELL CARCINOMA
     Dosage: 650 MG, CYCLIC (EVERY TWO WEEKS)
     Route: 042
     Dates: start: 20110223, end: 20110413
  5. FENISTIL [Concomitant]
     Indication: RASH
     Dosage: 1 MG, 4X/DAY
     Route: 048
     Dates: start: 20110420, end: 20110426

REACTIONS (1)
  - LUNG INFECTION [None]
